FAERS Safety Report 6317638-7 (Version None)
Quarter: 2009Q3

REPORT INFORMATION
  Report Type: 
  Country: None (occurrence: None)
  Receive Date: 20090820
  Receipt Date: 20090820
  Transmission Date: 20100115
  Serious: Yes (Hospitalization)
  Sender: FDA-Public Use
  Company Number: None

PATIENT
  Sex: Female
  Weight: 66.7 kg

DRUGS (2)
  1. CISPLATIN [Suspect]
     Indication: HEAD AND NECK CANCER
     Dosage: 100MG/M2 Q3 WEEKS IV RADIATION DAILY MON-FRI
     Route: 042
     Dates: start: 20090727
  2. CISPLATIN [Suspect]
     Indication: HEAD AND NECK CANCER
     Dosage: 100MG/M2 Q3 WEEKS IV RADIATION DAILY MON-FRI
     Route: 042
     Dates: start: 20090727

REACTIONS (1)
  - CELLULITIS [None]
